FAERS Safety Report 8153947-7 (Version None)
Quarter: 2012Q1

REPORT INFORMATION
  Report Type: 
  Country: None (occurrence: None)
  Receive Date: 20120221
  Receipt Date: 20120221
  Transmission Date: 20120608
  Serious: Yes (Hospitalization)
  Sender: FDA-Public Use
  Company Number: None

PATIENT
  Age: 62 Year
  Sex: Female

DRUGS (16)
  1. DOCETAXEL [Suspect]
     Indication: BREAST CANCER
     Dosage: 135 MG
     Route: 042
     Dates: start: 20111018, end: 20111018
  2. MONTELUKAST [Concomitant]
  3. LORAZEPAM [Concomitant]
  4. ROSUVASTATIN [Concomitant]
  5. NEBIVOLOL [Concomitant]
  6. OSARTAN-HYDROCHLOROTHIADE [Concomitant]
  7. NEULASTA [Concomitant]
  8. FAMOTIDINE [Concomitant]
  9. ASPIRIN [Concomitant]
  10. PROCHLORPERAZINE [Concomitant]
  11. BENZONATATE [Concomitant]
  12. AMLODIPINE [Concomitant]
  13. DEXAMETHASONE [Concomitant]
  14. ALBUTEROL [Concomitant]
  15. LANSOPRAZOLE [Concomitant]
  16. DIPHENHYDRAMINE HCL [Concomitant]

REACTIONS (4)
  - MUCOSAL INFLAMMATION [None]
  - PALMAR-PLANTAR ERYTHRODYSAESTHESIA SYNDROME [None]
  - NAUSEA [None]
  - VOMITING [None]
